FAERS Safety Report 10562445 (Version 3)
Quarter: 2016Q4

REPORT INFORMATION
  Report Type: Report from Study
  Country: GB (occurrence: GB)
  Receive Date: 20141104
  Receipt Date: 20161028
  Transmission Date: 20170206
  Serious: Yes (Death, Other)
  Sender: FDA-Public Use
  Company Number: GB-ROCHE-1485074

PATIENT

DRUGS (1)
  1. RITUXIMAB [Suspect]
     Active Substance: RITUXIMAB
     Indication: LYMPHOMA
     Dosage: IN 1 LIT OF NORMAL SALINE
     Route: 042

REACTIONS (21)
  - Arrhythmia [Unknown]
  - Visual acuity reduced [Not Recovered/Not Resolved]
  - Leukopenia [Unknown]
  - Pyrexia [Unknown]
  - Infusion site pain [Unknown]
  - Flushing [Unknown]
  - Respiratory tract infection [Unknown]
  - Febrile neutropenia [Unknown]
  - Neutrophil count abnormal [Unknown]
  - Dyspnoea [Unknown]
  - Rash [Unknown]
  - Thrombocytopenia [Unknown]
  - Alanine aminotransferase increased [Unknown]
  - Splenic rupture [Fatal]
  - Chills [Unknown]
  - Lymphopenia [Unknown]
  - Hypotension [Unknown]
  - Cardiac failure congestive [Unknown]
  - Anaemia [Unknown]
  - Anaphylactic reaction [Unknown]
  - Infection [Unknown]
